FAERS Safety Report 4604214-7 (Version None)
Quarter: 2005Q1

REPORT INFORMATION
  Report Type: 
  Country: None (occurrence: None)
  Receive Date: 20050214
  Receipt Date: 20050106
  Transmission Date: 20050727
  Serious: No
  Sender: FDA-Public Use
  Company Number: USA050187719

PATIENT
  Age: 43 Year
  Sex: Male

DRUGS (4)
  1. CIALIS [Suspect]
     Indication: ERECTILE DYSFUNCTION
     Dosage: 20 MG
     Dates: start: 20041001
  2. GLUCOVANCE [Concomitant]
  3. NORVASC [Concomitant]
  4. VICODIN [Concomitant]

REACTIONS (1)
  - DRUG INEFFECTIVE [None]
